FAERS Safety Report 15808800 (Version 2)
Quarter: 2019Q2

REPORT INFORMATION
  Report Type: Report from Study
  Country: PL (occurrence: PL)
  Receive Date: 20190110
  Receipt Date: 20190402
  Transmission Date: 20190711
  Serious: Yes (Other)
  Sender: FDA-Public Use
  Company Number: PL-CHIESI USA, INC.-PL-2019CHI000010

PATIENT

DRUGS (5)
  1. CUROSURF [Suspect]
     Active Substance: PORACTANT ALFA
     Dosage: UNK
     Route: 039
     Dates: start: 20181231
  2. CAFFEINE CITRATE. [Concomitant]
     Active Substance: CAFFEINE CITRATE
     Indication: PRODUCT USED FOR UNKNOWN INDICATION
     Dosage: 20 MG/KG, QD
     Dates: start: 20181229
  3. CUROSURF [Suspect]
     Active Substance: PORACTANT ALFA
     Dosage: UNK
     Route: 039
  4. KETAMINE [Concomitant]
     Active Substance: KETAMINE
     Indication: PREMEDICATION
     Dosage: 2 MG, QD
     Dates: start: 20181230, end: 20181230
  5. CUROSURF [Suspect]
     Active Substance: PORACTANT ALFA
     Indication: NEONATAL RESPIRATORY DISTRESS SYNDROME
     Dosage: 2.25 ML, UNK
     Route: 039
     Dates: start: 20181230

REACTIONS (2)
  - Neonatal hypoxia [Recovered/Resolved]
  - Product administration error [Recovered/Resolved]

NARRATIVE: CASE EVENT DATE: 20181230
